FAERS Safety Report 7930388-6 (Version None)
Quarter: 2011Q4

REPORT INFORMATION
  Report Type: 
  Country: None (occurrence: None)
  Receive Date: 20111121
  Receipt Date: 20111108
  Transmission Date: 20120403
  Serious: Yes (Hospitalization)
  Sender: FDA-Public Use
  Company Number: US-ROCHE-1012125

PATIENT
  Sex: Female

DRUGS (3)
  1. HERCEPTIN [Suspect]
     Indication: BREAST CANCER
     Dosage: OVER 90 MINUTES ON  DAY 1 OF WEEK 1 (LOADING DOSE, CYCLE 1 ONLY)
     Route: 042
     Dates: start: 20030611
  2. PACLITAXEL [Suspect]
     Indication: BREAST CANCER
     Dosage: OVER 1 HOUR QW EVERY 3 WEEKS.
     Route: 042
     Dates: start: 20030611
  3. HERCEPTIN [Suspect]
     Dosage: OVER 30 MINUTES QW  EVERY 3 WEEKS, WEEK 1 OF CYCLE 1 OFF
     Route: 042

REACTIONS (5)
  - VOMITING [None]
  - ORAL PAIN [None]
  - STOMATITIS [None]
  - NAUSEA [None]
  - DEHYDRATION [None]
